FAERS Safety Report 8081521-X (Version None)
Quarter: 2012Q1

REPORT INFORMATION
  Report Type: 
  Country: None (occurrence: None)
  Receive Date: 20120130
  Receipt Date: 20120124
  Transmission Date: 20120608
  Serious: Yes (Life-Threatening, Hospitalization, Other)
  Sender: FDA-Public Use
  Company Number: DE-PFIZER INC-2010157763

PATIENT
  Age: 80 Year
  Sex: Female
  Weight: 75 kg

DRUGS (10)
  1. OMEPRAZOLE [Suspect]
     Dosage: 40 MG DAILY
     Route: 048
     Dates: start: 20090427, end: 20100805
  2. OMEPRAZOLE [Suspect]
     Dosage: 80 MG, DAILY
     Route: 048
     Dates: start: 20100806, end: 20100812
  3. RAMIPRIL [Suspect]
     Dosage: 2.5 MG, 1X/DAY
     Route: 048
     Dates: start: 20090427, end: 20091211
  4. RAMIPRIL [Suspect]
     Dosage: 5 MG, 1X/DAY
     Route: 048
     Dates: start: 20091212, end: 20100812
  5. CITALOPRAM [Suspect]
     Dosage: 20 MG, DAILY
     Route: 048
     Dates: start: 20100708, end: 20100812
  6. CITALOPRAM [Suspect]
     Dosage: 10 MG, DAILY
     Route: 048
     Dates: start: 20100413, end: 20100707
  7. HALOPERIDOL [Suspect]
     Dosage: 1 MG, PER DAY
     Route: 048
     Dates: start: 20090427, end: 20100526
  8. HALOPERIDOL [Suspect]
     Dosage: 0.5 MG,  PER DAY
     Route: 048
     Dates: start: 20100527, end: 20100811
  9. IBUPROFEN [Suspect]
     Dosage: 600 MG, 3X/DAY
     Route: 048
     Dates: start: 20091211, end: 20100303
  10. IBUPROFEN [Suspect]
     Dosage: 600 MG, 2X/DAY
     Route: 048
     Dates: start: 20100304, end: 20100806

REACTIONS (9)
  - DEPRESSED LEVEL OF CONSCIOUSNESS [None]
  - DEHYDRATION [None]
  - TUBULOINTERSTITIAL NEPHRITIS [None]
  - NAUSEA [None]
  - AZOTAEMIA [None]
  - URAEMIC GASTROPATHY [None]
  - RENAL FAILURE ACUTE [None]
  - DIALYSIS [None]
  - VOMITING [None]
